FAERS Safety Report 6328467-2 (Version None)
Quarter: 2009Q3

REPORT INFORMATION
  Report Type: 
  Country: None (occurrence: None)
  Receive Date: 20090825
  Receipt Date: 20090626
  Transmission Date: 20100115
  Serious: No
  Sender: FDA-Public Use
  Company Number: US-ABBOTT-09P-163-0582490-00

PATIENT
  Sex: Female
  Weight: 106.69 kg

DRUGS (3)
  1. SYNTHROID [Suspect]
     Indication: HYPOTHYROIDISM
     Dosage: DAILY
     Route: 048
     Dates: start: 20090101, end: 20090501
  2. SYNTHROID [Suspect]
     Dosage: DAILY
     Route: 048
     Dates: start: 20090501
  3. UNKNOWN OTHER MEDICATIONS [Concomitant]
     Indication: DRUG USE FOR UNKNOWN INDICATION
     Dosage: UNKNOWN

REACTIONS (1)
  - FEELING ABNORMAL [None]
